FAERS Safety Report 9928418 (Version 1)
Quarter: 2014Q1

REPORT INFORMATION
  Report Type: Spontaneous
  Country: GB (occurrence: None)
  Receive Date: 20140224
  Receipt Date: 20140224
  Transmission Date: 20141002
  Serious: Yes (Other)
  Sender: FDA-Public Use
  Company Number: AUR-APL-2014-01872

PATIENT
  Age: 79 Year
  Sex: 0
  Weight: 51 kg

DRUGS (5)
  1. ALENDRONIC ACID (ALENDRONIC ACID) [Suspect]
     Indication: FEMUR FRACTURE
     Dosage: (70 MG, 1 IN 1 WK), ORAL
     Route: 048
     Dates: start: 20070304, end: 20130628
  2. MULTIVITAMIN (VIGRAN) (ERGOCALCIFEOL, ASCORBIC ACID, PYRIDOXINE HYDROCHLORIDE, THIAMINE HYDROCHLORIDE, RETINOL, RIBOFLAVIN, NICOTINAMIDE, CALCIUM PANTHOTHENATE) [Concomitant]
  3. OMEGA-3 FISH OIL (SALMO SALAR OIL) [Concomitant]
  4. TEMAZEPAM (TEMAZEPAM) [Concomitant]
  5. THYROXINE (LEVOTHYROXINE SODIUM) [Concomitant]

REACTIONS (5)
  - Bone pain [None]
  - Flatulence [None]
  - Malaise [None]
  - Myalgia [None]
  - Hypoaesthesia [None]
